FAERS Safety Report 4339946-1 (Version None)
Quarter: 2004Q2

REPORT INFORMATION
  Report Type: 
  Country: None (occurrence: None)
  Receive Date: 20040416
  Receipt Date: 20040407
  Transmission Date: 20050107
  Serious: Yes (Death)
  Sender: FDA-Public Use
  Company Number: FR-GLAXOSMITHKLINE-B0329212A

PATIENT
  Age: 61 Year
  Sex: Female
  Weight: 89 kg

DRUGS (7)
  1. AUGMENTIN [Suspect]
     Indication: ILL-DEFINED DISORDER
     Dosage: 1G SINGLE DOSE
     Route: 042
     Dates: start: 20040220
  2. HYPNOVEL [Concomitant]
     Dates: start: 20040219
  3. SUFENTA [Concomitant]
     Dates: start: 20040219
  4. SALBUMOL [Concomitant]
     Dates: start: 20040219
  5. ACTRAPID [Concomitant]
     Dates: start: 20040219
  6. SOLU-MEDROL [Concomitant]
     Dates: start: 20040219
  7. OMEPRAZOLE [Concomitant]
     Dates: start: 20040219

REACTIONS (6)
  - ANAPHYLACTIC SHOCK [None]
  - ANURIA [None]
  - BRONCHOSPASM [None]
  - CARDIO-RESPIRATORY ARREST [None]
  - COMA [None]
  - ERYTHEMA [None]
